FAERS Safety Report 9783157 (Version 1)
Quarter: 2013Q4

REPORT INFORMATION
  Report Type: Spontaneous
  Country: US (occurrence: US)
  Receive Date: 20131226
  Receipt Date: 20131226
  Transmission Date: 20140711
  Serious: Yes (Other)
  Sender: FDA-Public Use
  Company Number: US-SA-2013SA133121

PATIENT
  Sex: 0

DRUGS (4)
  1. FLUDARA [Suspect]
     Indication: CHRONIC LYMPHOCYTIC LEUKAEMIA
     Dosage: FREQUENCY: DAY 1-2-3 OF EACH CYCLE
     Route: 042
     Dates: start: 20131016, end: 20131120
  2. VINCRISTINE [Suspect]
     Indication: PRODUCT USED FOR UNKNOWN INDICATION
     Dosage: FREQUENCY:DAY 1-2-3 ONE CYCLE
     Route: 042
     Dates: start: 20130904, end: 20131004
  3. RITUXIMAB [Suspect]
     Indication: CHRONIC LYMPHOCYTIC LEUKAEMIA
     Dosage: 1 DAY EACH CYCLE DOSE:850 UNIT(S)
     Route: 042
     Dates: start: 20131018
  4. RITUXIMAB [Suspect]
     Indication: CHRONIC LYMPHOCYTIC LEUKAEMIA
     Dosage: 1 DAY EACH CYCLE DOSE:835 UNIT(S)
     Route: 042
     Dates: end: 20131118

REACTIONS (1)
  - Febrile neutropenia [Unknown]
